FAERS Safety Report 16411184 (Version 2)
Quarter: 2019Q2

REPORT INFORMATION
  Report Type: Spontaneous
  Country: GB (occurrence: GB)
  Receive Date: 20190610
  Receipt Date: 20190613
  Transmission Date: 20190711
  Serious: Yes (Hospitalization)
  Sender: FDA-Public Use
  Company Number: GB-PFIZER INC-2019240005

PATIENT
  Age: 76 Year
  Sex: Female

DRUGS (22)
  1. OXYCODONE [Suspect]
     Active Substance: OXYCODONE
     Dosage: 20 MG, 2X/DAY
  2. CYCLIZINE [Concomitant]
     Active Substance: CYCLIZINE
     Dosage: UNK
  3. LEVOTHYROXINE. [Concomitant]
     Active Substance: LEVOTHYROXINE
     Dosage: UNK
  4. OXYCODONE [Suspect]
     Active Substance: OXYCODONE
     Dosage: BREAKTHROUGH OPIOID USE FELL
  5. SERTRALINE [Concomitant]
     Active Substance: SERTRALINE HYDROCHLORIDE
  6. OXYCODONE [Suspect]
     Active Substance: OXYCODONE
     Indication: ANALGESIC THERAPY
     Dosage: 30 MG, 2X/DAY (EXTENDED RELEASE)
  7. OXYCODONE [Suspect]
     Active Substance: OXYCODONE
     Dosage: 20 MG, UNK
     Route: 058
  8. PARACETAMOL [Concomitant]
     Active Substance: ACETAMINOPHEN
     Indication: ANALGESIC THERAPY
     Dosage: 1 G, EVERY 4 HRS
  9. AROMASIN [Concomitant]
     Active Substance: EXEMESTANE
     Indication: BREAST CANCER
  10. TAZOCIN [Concomitant]
     Active Substance: PIPERACILLIN SODIUM\TAZOBACTAM SODIUM
     Indication: ANTIBIOTIC THERAPY
     Dosage: UNK
     Route: 042
  11. MORPHINE SULFATE. [Suspect]
     Active Substance: MORPHINE SULFATE
     Dosage: UNK
  12. OXYCODONE [Suspect]
     Active Substance: OXYCODONE
     Indication: PAIN
     Dosage: 45 MG, UNK (SUBCUTANEOUS INFUSION WITH MIDAZOLAM OVER 24 HOURS WAS COMMENCED USING A SYRINGE)
     Route: 058
  13. OXYCODONE [Suspect]
     Active Substance: OXYCODONE
     Indication: BREAKTHROUGH PAIN
     Dosage: 60 MG, UNK (AVERAGE TOTAL DAILY DOSE OF  IMMEDIATE RELEASE 60 MG)
  14. NORTRIPTYLINE [Concomitant]
     Active Substance: NORTRIPTYLINE
     Indication: ANALGESIC THERAPY
     Dosage: 20 MG, DAILY
  15. DEXAMETHASONE. [Concomitant]
     Active Substance: DEXAMETHASONE
     Indication: METASTATIC NEOPLASM
     Dosage: 6 MG, DAILY
  16. DUORESP SPIROMAX [Concomitant]
     Active Substance: BUDESONIDE\FORMOTEROL
     Route: 055
  17. OXYCODONE [Suspect]
     Active Substance: OXYCODONE
     Dosage: SEVERAL BREAKTHROUGH DOSES OF OXYCODONE
  18. MOMETASONE [Concomitant]
     Active Substance: MOMETASONE
  19. LANSOPRAZOLE. [Concomitant]
     Active Substance: LANSOPRAZOLE
     Dosage: UNK
  20. NIFEDIPINE. [Concomitant]
     Active Substance: NIFEDIPINE
     Dosage: UNK
  21. MIDAZOLAM [Concomitant]
     Active Substance: MIDAZOLAM HYDROCHLORIDE
     Dosage: 7.5 MG, UNK (SUBCUTANEOUS INFUSION WITH OXYDOCONE OVER 24 HOURS WAS COMMENCED USING A SYRINGE)
     Route: 058
  22. OXYCODONE [Suspect]
     Active Substance: OXYCODONE
     Dosage: 30 MG, UNK (REDUCED BY 25 %)
     Route: 058

REACTIONS (3)
  - Hyperaesthesia [Recovered/Resolved]
  - Agitation [Unknown]
  - Delirium [Recovered/Resolved]
